FAERS Safety Report 6271229-5 (Version None)
Quarter: 2009Q3

REPORT INFORMATION
  Report Type: 
  Country: None (occurrence: None)
  Receive Date: 20090717
  Receipt Date: 20090714
  Transmission Date: 20100115
  Serious: Yes (Other)
  Sender: FDA-Public Use
  Company Number: US-JNJFOC-20090704934

PATIENT
  Sex: Female
  Weight: 54.43 kg

DRUGS (2)
  1. LEVAQUIN [Suspect]
     Indication: PULMONARY OEDEMA
     Route: 048
  2. UNKNOWN MEDICATION [Concomitant]
     Indication: PULMONARY CONGESTION
     Route: 048

REACTIONS (4)
  - APHASIA [None]
  - CHOKING [None]
  - DYSPHAGIA [None]
  - OXYGEN SATURATION DECREASED [None]
